FAERS Safety Report 19334908 (Version 1)
Quarter: 2021Q2

REPORT INFORMATION
  Report Type: Spontaneous
  Country: US (occurrence: US)
  Receive Date: 20210529
  Receipt Date: 20210529
  Transmission Date: 20210717
  Serious: Yes (Other)
  Sender: FDA-Public Use
  Company Number: US-PURDUE-USA-2020-0230846

PATIENT
  Sex: Male

DRUGS (4)
  1. OXYCODONE HCL CR TABLETS (SIMILAR TO NDA 22?272) [Suspect]
     Active Substance: OXYCODONE HYDROCHLORIDE
     Indication: PAIN
  2. OXY IR [Suspect]
     Active Substance: OXYCODONE HYDROCHLORIDE
     Indication: PAIN
     Dosage: 30 MG, UNK
     Route: 065
  3. OXYMORPHONE [Suspect]
     Active Substance: OXYMORPHONE
     Indication: ROAD TRAFFIC ACCIDENT
     Dosage: 40 MG, UNK
     Route: 065
  4. OXYCODONE HCL CR TABLETS (SIMILAR TO NDA 22?272) [Suspect]
     Active Substance: OXYCODONE HYDROCHLORIDE
     Indication: ROAD TRAFFIC ACCIDENT
     Dosage: 30 MG, Q6H PRN
     Route: 065

REACTIONS (3)
  - Drug dependence [Unknown]
  - Pain [Unknown]
  - Emotional distress [Unknown]
